FAERS Safety Report 5520901-0 (Version None)
Quarter: 2007Q4

REPORT INFORMATION
  Report Type: 
  Country: None (occurrence: None)
  Receive Date: 20071119
  Receipt Date: 20071113
  Transmission Date: 20080405
  Serious: Yes (Hospitalization)
  Sender: FDA-Public Use
  Company Number: D0055134A

PATIENT
  Age: 56 Year
  Sex: Male

DRUGS (12)
  1. LAMICTAL [Suspect]
     Indication: DELUSIONAL DISORDER, UNSPECIFIED TYPE
     Dosage: 25MG PER DAY
     Route: 048
     Dates: start: 20070503, end: 20070516
  2. LORAZEPAM [Concomitant]
     Dosage: 3MG PER DAY
     Route: 048
     Dates: start: 20070401, end: 20070530
  3. PK-MERZ [Concomitant]
     Dosage: 100MG PER DAY
     Route: 048
     Dates: start: 20070510, end: 20070530
  4. SEROQUEL [Concomitant]
     Dosage: 200MG PER DAY
     Route: 048
     Dates: start: 20070510, end: 20070530
  5. TRILEPTAL [Concomitant]
     Dosage: 300MG PER DAY
     Route: 048
     Dates: start: 20070510, end: 20070511
  6. TRUXAL [Concomitant]
     Dosage: 100MG PER DAY
     Route: 048
     Dates: start: 20070510, end: 20070517
  7. L-THYROXIN [Concomitant]
     Dosage: 175MCG PER DAY
     Route: 048
     Dates: start: 20070401
  8. ASPIRIN [Concomitant]
     Dosage: 100MG PER DAY
     Route: 048
     Dates: start: 20070401
  9. TOLPERISONE HYDROCHLORIDE [Concomitant]
     Dosage: 150MG PER DAY
     Route: 048
     Dates: start: 20070510, end: 20070530
  10. BELOC [Concomitant]
     Dosage: 50MG PER DAY
     Route: 048
     Dates: start: 20070510, end: 20070530
  11. LAMISIL [Concomitant]
     Dosage: 250MG PER DAY
     Route: 048
     Dates: start: 20070510, end: 20070530
  12. MAGNESIUM SULFATE [Concomitant]
     Route: 048
     Dates: start: 20070510, end: 20070530

REACTIONS (4)
  - DERMATITIS ALLERGIC [None]
  - SKIN BACTERIAL INFECTION [None]
  - SKIN INFLAMMATION [None]
  - SKIN ULCER [None]
